FAERS Safety Report 21447281 (Version 1)
Quarter: 2022Q4

REPORT INFORMATION
  Report Type: Spontaneous
  Country: US (occurrence: None)
  Receive Date: 20221012
  Receipt Date: 20221012
  Transmission Date: 20230113
  Serious: Yes (Other)
  Sender: FDA-Public Use
  Company Number: 2022A339586

PATIENT
  Age: 22623 Day
  Sex: Male
  Weight: 122.5 kg

DRUGS (43)
  1. PRILOSEC [Suspect]
     Active Substance: OMEPRAZOLE MAGNESIUM
     Indication: Gastrooesophageal reflux disease
     Route: 048
  2. PRILOSEC [Suspect]
     Active Substance: OMEPRAZOLE MAGNESIUM
     Indication: Gastrooesophageal reflux disease
     Route: 065
     Dates: start: 2007
  3. PREVACID [Suspect]
     Active Substance: LANSOPRAZOLE
     Indication: Gastrooesophageal reflux disease
     Route: 065
  4. PREVACID [Suspect]
     Active Substance: LANSOPRAZOLE
     Indication: Gastrooesophageal reflux disease
     Route: 065
     Dates: start: 2006
  5. NORTRIPTYLINE [Concomitant]
     Active Substance: NORTRIPTYLINE
     Indication: Pain in extremity
     Dates: start: 2010
  6. PERCOCET [Concomitant]
     Active Substance: ACETAMINOPHEN\OXYCODONE HYDROCHLORIDE
     Indication: Pain in extremity
  7. ATENOLOL [Concomitant]
     Active Substance: ATENOLOL
     Indication: Cardiac disorder
     Dates: start: 2012
  8. LINZESS [Concomitant]
     Active Substance: LINACLOTIDE
     Indication: Constipation
     Dates: start: 2017
  9. HUMULIN R + N [Concomitant]
     Indication: Diabetes mellitus
     Dates: start: 2015
  10. VITAMIN D3 [Concomitant]
     Active Substance: CHOLECALCIFEROL
     Indication: Nutritional supplementation
  11. VITAMIN C [Concomitant]
     Active Substance: ASCORBIC ACID
     Indication: Nutritional supplementation
  12. NIACIN [Concomitant]
     Active Substance: NIACIN
     Indication: Blood cholesterol
  13. ANDROGEL [Concomitant]
     Active Substance: TESTOSTERONE
  14. GLIPIZIDE [Concomitant]
     Active Substance: GLIPIZIDE
  15. LISINOPRIL [Concomitant]
     Active Substance: LISINOPRIL
  16. METFORMIN [Concomitant]
     Active Substance: METFORMIN HYDROCHLORIDE
  17. DOXEPIN [Concomitant]
     Active Substance: DOXEPIN
  18. ACTOS [Concomitant]
     Active Substance: PIOGLITAZONE HYDROCHLORIDE
  19. DESMOPRESSIN [Concomitant]
     Active Substance: DESMOPRESSIN
  20. CARISOPRODOL [Concomitant]
     Active Substance: CARISOPRODOL
  21. LANSOPRAZOLE [Concomitant]
     Active Substance: LANSOPRAZOLE
  22. NORCO [Concomitant]
     Active Substance: ACETAMINOPHEN\HYDROCODONE BITARTRATE
  23. MAGNESIUM OXIDE [Concomitant]
     Active Substance: MAGNESIUM OXIDE
  24. TAMSULOSIN [Concomitant]
     Active Substance: TAMSULOSIN
  25. FLUPENTIXOL/NORTRIPTYLINE [Concomitant]
  26. OXYCODONE [Concomitant]
     Active Substance: OXYCODONE
  27. ASPIRIN [Concomitant]
     Active Substance: ASPIRIN
  28. NOVOLIN N [Concomitant]
     Active Substance: INSULIN HUMAN
  29. FLUPENTIXOL/NORTRIPTYLINE [Concomitant]
  30. MORPHINE [Concomitant]
     Active Substance: MORPHINE
  31. CHOLEST OFF [Concomitant]
  32. LYRICA [Concomitant]
     Active Substance: PREGABALIN
  33. MELOXICAM [Concomitant]
     Active Substance: MELOXICAM
  34. EPINEPHRINE [Concomitant]
     Active Substance: EPINEPHRINE
  35. VITAMINS [Concomitant]
     Active Substance: VITAMINS
  36. DESMOPRESSIN ACETATE [Concomitant]
     Active Substance: DESMOPRESSIN ACETATE
  37. ASCORBIC ACID [Concomitant]
     Active Substance: ASCORBIC ACID
  38. GLYBURIDE [Concomitant]
     Active Substance: GLYBURIDE
  39. DOXEPIN HCL [Concomitant]
     Active Substance: DOXEPIN HYDROCHLORIDE
  40. FUROSEMIDE [Concomitant]
     Active Substance: FUROSEMIDE
  41. CLINDAMYCIN HYDROCHLORIDE [Concomitant]
     Active Substance: CLINDAMYCIN HYDROCHLORIDE
  42. SULINDAC [Concomitant]
     Active Substance: SULINDAC
  43. CALCIUM CITRATE [Concomitant]
     Active Substance: CALCIUM CITRATE

REACTIONS (4)
  - Chronic kidney disease [Not Recovered/Not Resolved]
  - Acute kidney injury [Unknown]
  - Renal failure [Unknown]
  - Nephrogenic anaemia [Unknown]

NARRATIVE: CASE EVENT DATE: 20110718
